FAERS Safety Report 22631326 (Version 5)
Quarter: 2023Q4

REPORT INFORMATION
  Report Type: Report from Study
  Country: BR (occurrence: BR)
  Receive Date: 20230623
  Receipt Date: 20231004
  Transmission Date: 20240109
  Serious: Yes (Other)
  Sender: FDA-Public Use
  Company Number: BR-002147023-NVSC2023BR105468

PATIENT
  Age: 52 Year
  Sex: Female

DRUGS (7)
  1. KISQALI [Suspect]
     Active Substance: RIBOCICLIB
     Indication: Breast cancer
     Dosage: UNK
     Route: 065
  2. KISQALI [Suspect]
     Active Substance: RIBOCICLIB
     Dosage: 3 DOSAGE FORM
     Route: 065
  3. KISQALI [Suspect]
     Active Substance: RIBOCICLIB
     Dosage: 2 DOSAGE FORM
     Route: 065
  4. KISQALI [Suspect]
     Active Substance: RIBOCICLIB
     Dosage: 3 DOSAGE FORM, QD (IN THE MORNING)
     Route: 065
     Dates: start: 20221222
  5. KISQALI [Suspect]
     Active Substance: RIBOCICLIB
     Dosage: 2 DOSAGE FORM, QD (IN THE MORNING)
     Route: 065
     Dates: start: 202307
  6. KISQALI [Suspect]
     Active Substance: RIBOCICLIB
     Dosage: 3 DOSAGE FORM, QD (IN THE MORNING)
     Route: 065
     Dates: start: 202308
  7. ANASTROZOLE [Suspect]
     Active Substance: ANASTROZOLE
     Indication: Breast cancer
     Dosage: UNK (STARTED BEFORE RIBOCILCIB)
     Route: 065

REACTIONS (25)
  - Neoplasm malignant [Recovering/Resolving]
  - Acidosis [Unknown]
  - Memory impairment [Unknown]
  - Ocular hyperaemia [Unknown]
  - Feeling hot [Unknown]
  - Lacrimation increased [Unknown]
  - Burning sensation [Unknown]
  - Thermal burn [Unknown]
  - Bone pain [Unknown]
  - Skin discolouration [Unknown]
  - Hair growth abnormal [Unknown]
  - Hot flush [Unknown]
  - Pain in extremity [Unknown]
  - Arthralgia [Unknown]
  - Gastrooesophageal reflux disease [Unknown]
  - Blood magnesium decreased [Not Recovered/Not Resolved]
  - Hyperchlorhydria [Unknown]
  - Head discomfort [Unknown]
  - Dysuria [Unknown]
  - Anorectal discomfort [Unknown]
  - Tearfulness [Unknown]
  - Flatulence [Unknown]
  - Urinary tract discomfort [Unknown]
  - Blood potassium decreased [Not Recovered/Not Resolved]
  - Product use issue [Unknown]

NARRATIVE: CASE EVENT DATE: 20230710
